FAERS Safety Report 5710945-8 (Version None)
Quarter: 2008Q2

REPORT INFORMATION
  Report Type: 
  Country: None (occurrence: None)
  Receive Date: 20080421
  Receipt Date: 20080408
  Transmission Date: 20081010
  Serious: Yes (Hospitalization)
  Sender: FDA-Public Use
  Company Number: PHHO2008EG03879

PATIENT
  Age: 65 Year
  Sex: Female
  Weight: 94 kg

DRUGS (2)
  1. FEMARA [Suspect]
     Indication: BREAST CANCER
     Dosage: 2.5 MG, QD
     Route: 048
     Dates: start: 20040513
  2. ZOLEDRONIC ACID [Suspect]
     Indication: BREAST CANCER
     Dosage: 4MG EVERY 6 MONTHS
     Route: 042
     Dates: start: 20040513

REACTIONS (2)
  - FEMUR FRACTURE [None]
  - INTERNAL FIXATION OF FRACTURE [None]
